FAERS Safety Report 5035173-3 (Version None)
Quarter: 2006Q2

REPORT INFORMATION
  Report Type: 
  Country: None (occurrence: None)
  Receive Date: 20060622
  Receipt Date: 20060613
  Transmission Date: 20061013
  Serious: Yes (Other)
  Sender: FDA-Public Use
  Company Number: GXKR2006JP03359

PATIENT
  Age: 65 Year
  Sex: Male

DRUGS (1)
  1. ISONIAZID [Suspect]
     Indication: TUBERCULOSIS

REACTIONS (4)
  - BLOOD IMMUNOGLOBULIN E INCREASED [None]
  - FOOD INTERACTION [None]
  - FOOD POISONING [None]
  - HYPERSENSITIVITY [None]
